FAERS Safety Report 8657890 (Version 4)
Quarter: 2013Q1

REPORT INFORMATION
  Report Type: Spontaneous
  Country: US (occurrence: US)
  Receive Date: 20120710
  Receipt Date: 20130122
  Transmission Date: 20140127
  Serious: Yes (Other)
  Sender: FDA-Public Use
  Company Number: US-PFIZER INC-2012161409

PATIENT
  Age: 69 Year
  Sex: Female

DRUGS (12)
  1. SUTENT [Suspect]
     Indication: METASTATIC RENAL CELL CARCINOMA
     Dosage: 25 MG, UNK
     Route: 048
     Dates: start: 20110419, end: 201206
  2. LIPITOR [Suspect]
     Dosage: UNK
  3. AFINITOR [Suspect]
     Indication: BREAST CANCER
     Dosage: UNK
  4. AFINITOR [Suspect]
     Dosage: UNK
     Dates: start: 20120731
  5. NITROGLYCERIN [Concomitant]
     Dosage: 1 SPRAY, AS NEEDED
     Route: 048
  6. NOLVADEX [Concomitant]
     Dosage: 20 MG, QD
     Route: 048
  7. OXYCODONE [Concomitant]
     Indication: PAIN
     Dosage: 5 MG, EVERY 4 HRS
     Route: 048
  8. OYSTCAL [Concomitant]
     Dosage: 500 MG, 4X/DAY
     Route: 048
  9. TIZANIDINE [Concomitant]
     Dosage: 2 MG, EVERY DAY BEFORE SLEEP
     Route: 048
  10. TRAMADOL [Concomitant]
     Indication: PAIN
     Dosage: 200 MG, DAILY, AT NIGHT
     Route: 048
  11. TYLENOL [Concomitant]
     Route: 048
  12. VITAMIN D [Concomitant]
     Dosage: 5000 MG, EVERY OTHER DAY
     Route: 048

REACTIONS (3)
  - Urinary tract infection [Recovering/Resolving]
  - Disease progression [Unknown]
  - Metastatic renal cell carcinoma [Unknown]
